FAERS Safety Report 10003476 (Version 2)
Quarter: 2014Q1

REPORT INFORMATION
  Report Type: Spontaneous
  Country: US (occurrence: US)
  Receive Date: 20140312
  Receipt Date: 20140312
  Transmission Date: 20141002
  Serious: No
  Sender: FDA-Public Use
  Company Number: US-GILEAD-2012-0058069

PATIENT
  Sex: Female

DRUGS (3)
  1. LETAIRIS [Suspect]
     Indication: PULMONARY ARTERIAL HYPERTENSION
     Dosage: 10 MG, QD
     Route: 048
     Dates: start: 20110926
  2. VENTAVIS [Suspect]
  3. REVATIO [Concomitant]

REACTIONS (4)
  - Productive cough [Unknown]
  - Pain in jaw [Unknown]
  - Cough [Unknown]
  - Dyspnoea [Unknown]
